FAERS Safety Report 8848262 (Version 1)
Quarter: 2012Q4

REPORT INFORMATION
  Report Type: 
  Country: DZ (occurrence: DZ)
  Receive Date: 20121018
  Receipt Date: 20121018
  Transmission Date: 20130627
  Serious: Yes (Other)
  Sender: FDA-Public Use
  Company Number: DZ-ROCHE-1146077

PATIENT
  Age: 45 Year
  Sex: Female

DRUGS (3)
  1. PEGASYS [Suspect]
     Indication: HEPATITIS C
     Route: 058
  2. COPEGUS [Suspect]
     Indication: HEPATITIS C
     Dosage: stopped for five days
     Route: 065
  3. COPEGUS [Suspect]
     Dosage: restarted
     Route: 065

REACTIONS (1)
  - Toxic skin eruption [Recovered/Resolved]
